FAERS Safety Report 17136897 (Version 1)
Quarter: 2019Q4

REPORT INFORMATION
  Report Type: Spontaneous
  Country: DE (occurrence: DE)
  Receive Date: 20191210
  Receipt Date: 20191210
  Transmission Date: 20200122
  Serious: Yes (Hospitalization)
  Sender: FDA-Public Use
  Company Number: DE-NOVOPROD-700170

PATIENT
  Age: 18 Year
  Sex: Male
  Weight: 83 kg

DRUGS (2)
  1. LEVEMIR [Suspect]
     Active Substance: INSULIN DETEMIR
     Indication: PRODUCT USED FOR UNKNOWN INDICATION
     Dosage: UNK (ACCORDING TO BLOOD GLUCOSE)
     Route: 058
  2. INSULIN LISPRO [Suspect]
     Active Substance: INSULIN LISPRO
     Indication: PRODUCT USED FOR UNKNOWN INDICATION
     Dosage: UNK (ACCORDING TO BLOOD GLUCOSE)
     Route: 058

REACTIONS (6)
  - Abdominal pain [Unknown]
  - Somnolence [Unknown]
  - Hyperglycaemia [Unknown]
  - Vomiting [Unknown]
  - Product dose omission [Unknown]
  - Skin fissures [Unknown]
